FAERS Safety Report 19069192 (Version 1)
Quarter: 2021Q1

REPORT INFORMATION
  Report Type: Spontaneous
  Country: GB (occurrence: GB)
  Receive Date: 20210329
  Receipt Date: 20210329
  Transmission Date: 20210420
  Serious: Yes (Other)
  Sender: FDA-Public Use
  Company Number: GB-TEVA-2021-GB-1880920

PATIENT
  Age: 54 Year
  Sex: Male
  Weight: 67.58 kg

DRUGS (2)
  1. HYDROCORTISONE. [Suspect]
     Active Substance: HYDROCORTISONE
     Indication: ILL-DEFINED DISORDER
     Dosage: 10MG AT 8.00AM AND 5MG AT 2.00PM
     Route: 048
     Dates: start: 20201230
  2. HYDROCORTISONE. [Suspect]
     Active Substance: HYDROCORTISONE
     Indication: HYPOPITUITARISM

REACTIONS (3)
  - Abdominal distension [Unknown]
  - Vomiting [Unknown]
  - Dyspepsia [Unknown]

NARRATIVE: CASE EVENT DATE: 20210106
